FAERS Safety Report 5925161-4 (Version None)
Quarter: 2008Q4

REPORT INFORMATION
  Report Type: 
  Country: None (occurrence: None)
  Receive Date: 20081020
  Receipt Date: 20081020
  Transmission Date: 20090506
  Serious: Yes (Hospitalization)
  Sender: FDA-Public Use
  Company Number: None

PATIENT
  Age: 81 Year
  Sex: Male

DRUGS (19)
  1. RISPERIDONE [Suspect]
     Indication: DEMENTIA ALZHEIMER'S TYPE
     Dosage: 0.5MG PO QHS  : 1MG
     Route: 048
     Dates: start: 20070921, end: 20080813
  2. RISPERIDONE [Suspect]
     Indication: PSYCHOTIC DISORDER
     Dosage: 0.5MG PO QHS  : 1MG
     Route: 048
     Dates: start: 20070921, end: 20080813
  3. RISPERIDONE [Suspect]
     Indication: VASCULAR DEMENTIA
     Dosage: 0.5MG PO QHS  : 1MG
     Route: 048
     Dates: start: 20070921, end: 20080813
  4. RISPERIDONE [Suspect]
     Indication: DEMENTIA ALZHEIMER'S TYPE
     Dosage: 0.5MG PO QHS  : 1MG
     Route: 048
     Dates: start: 20080813
  5. RISPERIDONE [Suspect]
     Indication: PSYCHOTIC DISORDER
     Dosage: 0.5MG PO QHS  : 1MG
     Route: 048
     Dates: start: 20080813
  6. RISPERIDONE [Suspect]
     Indication: VASCULAR DEMENTIA
     Dosage: 0.5MG PO QHS  : 1MG
     Route: 048
     Dates: start: 20080813
  7. ALBUTEROL/IPRATROPIUM BR [Concomitant]
  8. GLYCURIDE [Concomitant]
  9. ASPIRIN [Concomitant]
  10. CETIRIZINE HCL [Concomitant]
  11. CITALOPRAM HYDROBROMIDE [Concomitant]
  12. OMEPRAZOLE [Concomitant]
  13. ATENOLOL [Concomitant]
  14. SIMVASTATIN [Concomitant]
  15. HYDROCHLOROTHIAZIDE [Concomitant]
  16. LOSARTAN [Concomitant]
  17. METFORMIN HYDROCHLORIDE [Concomitant]
  18. GALANTAMINE HYDROBROMIDE [Concomitant]
  19. FLUTICASONE NASAL INH [Concomitant]

REACTIONS (5)
  - DEMENTIA [None]
  - FEAR [None]
  - MEMORY IMPAIRMENT [None]
  - POOR QUALITY SLEEP [None]
  - UNDERDOSE [None]
